FAERS Safety Report 24209346 (Version 1)
Quarter: 2024Q3

REPORT INFORMATION
  Report Type: Spontaneous
  Country: US (occurrence: None)
  Receive Date: 20240813
  Receipt Date: 20240813
  Transmission Date: 20241017
  Serious: Yes (Other)
  Sender: Public
  Company Number: None

PATIENT
  Age: 22 Year
  Sex: Male

DRUGS (3)
  1. HERBALS\MUSHROOMS UNSPECIFIED [Suspect]
     Active Substance: HERBALS\MUSHROOMS UNSPECIFIED
     Dosage: ORAL
     Route: 048
     Dates: start: 20240810
  2. LITHIUM [Concomitant]
     Active Substance: LITHIUM
  3. BUPROPION [Concomitant]
     Active Substance: BUPROPION

REACTIONS (4)
  - Loss of consciousness [None]
  - Psychotic disorder [None]
  - Suicide attempt [None]
  - Abnormal dreams [None]

NARRATIVE: CASE EVENT DATE: 20240810
